FAERS Safety Report 14016907 (Version 1)
Quarter: 2017Q3

REPORT INFORMATION
  Report Type: Spontaneous
  Country: DE (occurrence: DE)
  Receive Date: 20170927
  Receipt Date: 20170927
  Transmission Date: 20171128
  Serious: Yes (Hospitalization)
  Sender: FDA-Public Use
  Company Number: DE-CURIUM PHARMACEUTICALS-201700222

PATIENT
  Age: 76 Year
  Sex: Female

DRUGS (4)
  1. LEVODOPA [Concomitant]
     Active Substance: LEVODOPA
     Indication: PARKINSON^S DISEASE
     Route: 065
  2. REGADENOSON [Concomitant]
     Active Substance: REGADENOSON
     Indication: CARDIAC PHARMACOLOGIC STRESS TEST
     Route: 042
     Dates: start: 20170829
  3. TEKCIS 2?50 GBQ RADIONUKLIDGENERATOR [Concomitant]
     Active Substance: TECHNETIUM TC-99M SODIUM PERTECHNETATE
     Indication: CORONARY ARTERY DISEASE
     Route: 042
     Dates: start: 20170829, end: 20170829
  4. TECHNESCAN SESTAMIBI 1 MG KIT F?R EIN RADIOAKTIVES ARZNEIMITTEL (TETRAKIS(2-METHOXYISOBUTYLISOCYANIDE)COPPER(I) TETRAFLUOROBORATE) [Suspect]
     Active Substance: TETRAKIS(2-METHOXYISOBUTYLISOCYANIDE)COPPER(I) TETRAFLUOROBORATE
     Indication: CORONARY ARTERY DISEASE
     Route: 042
     Dates: start: 20170829, end: 20170829

REACTIONS (2)
  - Vomiting [Recovered/Resolved]
  - Dehydration [Recovered/Resolved]

NARRATIVE: CASE EVENT DATE: 20170829
